FAERS Safety Report 9010323 (Version 1)
Quarter: 2013Q1

REPORT INFORMATION
  Report Type: Spontaneous
  Country: JP (occurrence: JP)
  Receive Date: 20130110
  Receipt Date: 20130110
  Transmission Date: 20140127
  Serious: Yes (Hospitalization, Other)
  Sender: FDA-Public Use
  Company Number: JP-AMGEN-JPNSP2013000843

PATIENT
  Age: 52 Year
  Sex: Male
  Weight: 62.7 kg

DRUGS (1)
  1. CINACALCET HCL [Suspect]
     Indication: HYPERPARATHYROIDISM SECONDARY
     Dosage: 25 MG, QD
     Dates: start: 200906

REACTIONS (1)
  - Parathyroid haemorrhage [Unknown]
